FAERS Safety Report 6105267-X (Version None)
Quarter: 2009Q1

REPORT INFORMATION
  Report Type: 
  Country: None (occurrence: None)
  Receive Date: 20090227
  Receipt Date: 20080612
  Transmission Date: 20090719
  Serious: Yes (Other)
  Sender: FDA-Public Use
  Company Number: RB-1884-2008

PATIENT
  Sex: Male

DRUGS (1)
  1. SUBOXONE [Suspect]
     Indication: DRUG USE FOR UNKNOWN INDICATION
     Dosage: UNKNOWN AMOUNT OF SUBOXONE TAKEN
     Dates: start: 20080611, end: 20080611

REACTIONS (2)
  - ACCIDENTAL DRUG INTAKE BY CHILD [None]
  - SEDATION [None]
